FAERS Safety Report 7886568-1 (Version None)
Quarter: 2011Q4

REPORT INFORMATION
  Report Type: 
  Country: None (occurrence: None)
  Receive Date: 20111102
  Receipt Date: 20110707
  Transmission Date: 20120403
  Serious: No
  Sender: FDA-Public Use
  Company Number: US-AMGEN-USASP2011034500

PATIENT
  Sex: Female

DRUGS (14)
  1. AZELASTINE SPRAY [Concomitant]
  2. HYDROXYCHLOROQUINE SULFATE [Concomitant]
  3. VITAMIN C                          /00008001/ [Concomitant]
  4. ENBREL [Suspect]
     Indication: RHEUMATOID ARTHRITIS
     Dosage: 50 MG, QWK
     Dates: start: 20030309
  5. METHOTREXATE [Concomitant]
  6. LOVAZA [Concomitant]
  7. MILK THISTLE [Concomitant]
  8. VITAMIN E                          /00110501/ [Concomitant]
  9. PINE BARK [Concomitant]
  10. FOLIC ACID [Concomitant]
  11. SUPER B [Concomitant]
  12. CELEBREX [Concomitant]
  13. FLONASE [Concomitant]
  14. FLAX SEED OIL [Concomitant]

REACTIONS (2)
  - SPUTUM DISCOLOURED [None]
  - RESPIRATORY TRACT CONGESTION [None]
